FAERS Safety Report 4766527-8 (Version None)
Quarter: 2005Q3

REPORT INFORMATION
  Report Type: 
  Country: None (occurrence: None)
  Receive Date: 20050909
  Receipt Date: 20050829
  Transmission Date: 20060218
  Serious: Yes (Other)
  Sender: FDA-Public Use
  Company Number: 2005JP001560

PATIENT
  Age: 21 Year
  Sex: Male
  Weight: 40 kg

DRUGS (17)
  1. FUNGUARD (MICAFUNGIN) INJECTION [Suspect]
     Dosage: UID/QD, IV DRIP
     Route: 041
     Dates: start: 20050707, end: 20050707
  2. FUNGUARD (MICAFUNGIN) INJECTION [Suspect]
     Dosage: UID/QD, IV DRIP
     Route: 041
     Dates: start: 20050721, end: 20050721
  3. MEDROL [Concomitant]
  4. ALLOPURINOL [Concomitant]
  5. DIFLUCAN (FLUCONAZOLE) CAPSULE [Concomitant]
  6. ITRIZOLE (ITRACONAZOLE) CAPSULE [Concomitant]
  7. SINGULAIR (MONTELUKAST) TABLET [Concomitant]
  8. ACINON (NIZATIDINE) CAPSULE [Concomitant]
  9. SHAKUYAKUKANZOUTOU POWDER [Concomitant]
  10. NEORAL CAPSULE [Concomitant]
  11. UNASYN S (AMPICILLIN SODIUM, SULBACTAM SODIUM) INJECTION [Concomitant]
  12. CARBENIN (BETAMIPRON, PANIPENEM) INJECTION [Concomitant]
  13. STRONG NEO-MINOPHAGEN C (AMINOACETIC ACID, GLYCYRRHIZIC ACID, CYSTEINE [Concomitant]
  14. GASTER INJECTION [Concomitant]
  15. ELEMENMIC (MINERALS NOS) INJECTION [Concomitant]
  16. CODEINE PHOSPHATE POWDER [Concomitant]
  17. LOWPSTON (FUROSEMIDE) INJECTION [Concomitant]

REACTIONS (4)
  - BACK PAIN [None]
  - HAEMATURIA [None]
  - HEPATIC FUNCTION ABNORMAL [None]
  - IMMUNODEFICIENCY [None]
